FAERS Safety Report 10283812 (Version 2)
Quarter: 2014Q4

REPORT INFORMATION
  Report Type: Report from Study
  Country: JP (occurrence: None)
  Receive Date: 20140708
  Receipt Date: 20141229
  Transmission Date: 20150528
  Serious: Yes (Death, Hospitalization)
  Sender: FDA-Public Use
  Company Number: 2009JP002362

PATIENT
  Age: 59 Year
  Sex: Female
  Weight: 59 kg

DRUGS (9)
  1. LACTATED RINGERS [Concomitant]
     Active Substance: CALCIUM CHLORIDE\POTASSIUM CHLORIDE\SODIUM CHLORIDE\SODIUM LACTATE
  2. ACTONEL [Concomitant]
     Active Substance: RISEDRONATE SODIUM
  3. CRAVIT [Concomitant]
     Active Substance: LEVOFLOXACIN
  4. PREDONINE [Concomitant]
     Active Substance: PREDNISOLONE\PREDNISOLONE ACETATE\PREDNISOLONE SODIUM SUCCINATE
  5. PROGRAF [Suspect]
     Active Substance: TACROLIMUS\TACROLIMUS ANHYDROUS
     Indication: LUPUS NEPHRITIS
     Route: 048
     Dates: start: 20080912, end: 20090515
  6. PREDONINE [Suspect]
     Active Substance: PREDNISOLONE\PREDNISOLONE ACETATE\PREDNISOLONE SODIUM SUCCINATE
     Indication: LUPUS NEPHRITIS
     Route: 048
     Dates: end: 20081114
  7. TAKEPRON (LANSOPRAZOLE) [Concomitant]
     Active Substance: LANSOPRAZOLE
  8. BONALON [Concomitant]
     Active Substance: ALENDRONATE SODIUM
  9. BONOTEO [Concomitant]
     Active Substance: MINODRONIC ACID

REACTIONS (10)
  - Abdominal pain [None]
  - Vomiting [None]
  - Escherichia infection [None]
  - Enteritis infectious [None]
  - Coronary artery stenosis [None]
  - Cardiac failure [None]
  - Angina pectoris [None]
  - Diarrhoea [None]
  - Myocardial ischaemia [None]
  - Weight decreased [None]

NARRATIVE: CASE EVENT DATE: 20090311
